FAERS Safety Report 14304508 (Version 1)
Quarter: 2017Q4

REPORT INFORMATION
  Report Type: Report from Study
  Country: JP (occurrence: JP)
  Receive Date: 20171219
  Receipt Date: 20171219
  Transmission Date: 20180321
  Serious: Yes (Disabling)
  Sender: FDA-Public Use
  Company Number: JP-OTSUKA-000721

PATIENT

DRUGS (5)
  1. ARIPIPRAZOLE. [Suspect]
     Active Substance: ARIPIPRAZOLE
     Indication: SCHIZOPHRENIA
     Dosage: 6 MG, BID
     Route: 048
     Dates: start: 20070316, end: 20080109
  2. MIRADOL [Concomitant]
     Active Substance: SULPIRIDE
     Indication: SCHIZOPHRENIA
     Dosage: 300 MG, QD
     Route: 048
  3. GRAMALIL [Concomitant]
     Active Substance: TIAPRIDE HYDROCHLORIDE
     Dosage: 75 MG, QD
     Route: 048
     Dates: start: 20070919, end: 20080220
  4. DEPAS [Concomitant]
     Active Substance: ETIZOLAM
     Indication: SCHIZOPHRENIA
     Dosage: 1.5 MG, QD
     Route: 048
  5. SULPIRIDE [Concomitant]
     Active Substance: SULPIRIDE

REACTIONS (1)
  - Parkinsonism [Recovered/Resolved with Sequelae]

NARRATIVE: CASE EVENT DATE: 20071226
